FAERS Safety Report 8436077-6 (Version None)
Quarter: 2012Q2

REPORT INFORMATION
  Report Type: 
  Country: None (occurrence: None)
  Receive Date: 20120614
  Receipt Date: 20120611
  Transmission Date: 20120825
  Serious: Yes (Other)
  Sender: FDA-Public Use
  Company Number: RO-FRI-1000029134

PATIENT
  Sex: Male

DRUGS (3)
  1. XANAX [Suspect]
  2. ESCITALOPRAM [Suspect]
  3. LEXOTAN [Suspect]

REACTIONS (2)
  - HOMICIDE [None]
  - AGGRESSION [None]
